FAERS Safety Report 10917837 (Version 3)
Quarter: 2015Q2

REPORT INFORMATION
  Report Type: Spontaneous
  Country: JP (occurrence: JP)
  Receive Date: 20150316
  Receipt Date: 20150420
  Transmission Date: 20150821
  Serious: Yes (Hospitalization)
  Sender: FDA-Public Use
  Company Number: JP-GLAXOSMITHKLINE-JP2015JPN007209

PATIENT
  Age: 37 Year
  Sex: Male

DRUGS (7)
  1. TALION OD [Concomitant]
     Indication: DERMATITIS ALLERGIC
     Dosage: UNK, BID
  2. MAINTATE [Concomitant]
     Active Substance: BISOPROLOL FUMARATE
  3. METLIGINE [Concomitant]
     Active Substance: MIDODRINE HYDROCHLORIDE
  4. LAMICTAL [Suspect]
     Active Substance: LAMOTRIGINE
     Indication: BIPOLAR DISORDER
     Dosage: 25 MG, 1D
     Route: 048
     Dates: start: 20140522, end: 20140716
  5. LAMICTAL [Suspect]
     Active Substance: LAMOTRIGINE
     Dosage: 125 MG, QD
     Route: 048
     Dates: start: 20140814, end: 201502
  6. LAMICTAL [Suspect]
     Active Substance: LAMOTRIGINE
     Dosage: 100 MG, 1D
     Route: 048
     Dates: start: 20140717, end: 20140813
  7. DIAZEPAM. [Concomitant]
     Active Substance: DIAZEPAM
     Dosage: UNK UNK, PRN

REACTIONS (2)
  - Lymphadenopathy [Not Recovered/Not Resolved]
  - Goitre [Not Recovered/Not Resolved]

NARRATIVE: CASE EVENT DATE: 201412
